FAERS Safety Report 19190872 (Version 1)
Quarter: 2021Q2

REPORT INFORMATION
  Report Type: Spontaneous
  Country: US (occurrence: US)
  Receive Date: 20210428
  Receipt Date: 20210428
  Transmission Date: 20210717
  Serious: Yes (Hospitalization)
  Sender: FDA-Public Use
  Company Number: None

PATIENT
  Age: 57 Year
  Sex: Female
  Weight: 55.79 kg

DRUGS (1)
  1. CLINDAMYCIN HCL [Suspect]
     Active Substance: CLINDAMYCIN HYDROCHLORIDE
     Indication: GINGIVAL SWELLING
     Route: 048
     Dates: start: 20210418, end: 20210420

REACTIONS (8)
  - Diarrhoea [None]
  - Photophobia [None]
  - Nausea [None]
  - Blood potassium decreased [None]
  - Hypersensitivity [None]
  - Dizziness [None]
  - Dry mouth [None]
  - Tremor [None]

NARRATIVE: CASE EVENT DATE: 20210420
